FAERS Safety Report 18053159 (Version 3)
Quarter: 2020Q4

REPORT INFORMATION
  Report Type: Report from Study
  Country: BR (occurrence: BR)
  Receive Date: 20200722
  Receipt Date: 20201115
  Transmission Date: 20210113
  Serious: Yes (Other)
  Sender: FDA-Public Use
  Company Number: PHHY2019BR126954

PATIENT
  Age: 34 Year
  Sex: Male
  Weight: 60 kg

DRUGS (6)
  1. PREDNISONE. [Concomitant]
     Active Substance: PREDNISONE
     Indication: PRODUCT USED FOR UNKNOWN INDICATION
     Dosage: 40 MG, UNKNOWN
     Route: 065
  2. COSENTYX [Suspect]
     Active Substance: SECUKINUMAB
     Dosage: 1 DF, UNKNOWN
     Route: 058
     Dates: start: 202008
  3. COSENTYX [Suspect]
     Active Substance: SECUKINUMAB
     Indication: ANKYLOSING SPONDYLITIS
     Dosage: 1 DF, UNKNOWN
     Route: 058
     Dates: start: 20170731
  4. COSENTYX [Suspect]
     Active Substance: SECUKINUMAB
     Dosage: 1 DF, UNKNOWN
     Route: 058
     Dates: start: 202005
  5. OMEPRAZOLE. [Concomitant]
     Active Substance: OMEPRAZOLE
     Indication: PRODUCT USED FOR UNKNOWN INDICATION
     Dosage: UNK
     Route: 065
  6. COSENTYX [Suspect]
     Active Substance: SECUKINUMAB
     Dosage: 1 DF, UNKNOWN
     Route: 058
     Dates: start: 20170807

REACTIONS (15)
  - Malaise [Unknown]
  - Musculoskeletal discomfort [Unknown]
  - Therapeutic response decreased [Not Recovered/Not Resolved]
  - Malaise [Recovered/Resolved]
  - Headache [Unknown]
  - Influenza [Recovering/Resolving]
  - Pain [Not Recovered/Not Resolved]
  - Pharyngitis [Not Recovered/Not Resolved]
  - Chemical poisoning [Recovered/Resolved]
  - Influenza [Recovered/Resolved]
  - Dysstasia [Unknown]
  - Spinal disorder [Unknown]
  - Pyrexia [Recovering/Resolving]
  - Tendon disorder [Unknown]
  - Pharyngeal swelling [Not Recovered/Not Resolved]

NARRATIVE: CASE EVENT DATE: 20200620
